FAERS Safety Report 7808332-1 (Version None)
Quarter: 2011Q4

REPORT INFORMATION
  Report Type: 
  Country: None (occurrence: None)
  Receive Date: 20111012
  Receipt Date: 20111006
  Transmission Date: 20120403
  Serious: Yes (Hospitalization)
  Sender: FDA-Public Use
  Company Number: FR-SP-2011-05615

PATIENT
  Sex: Male

DRUGS (9)
  1. DANTRIUM (DANTROLENE) [Concomitant]
  2. OFLOCET (OFLOXACINE) [Concomitant]
  3. BACLOFEN [Concomitant]
  4. CLONAZEPAM [Concomitant]
  5. JOSIR (TAMSULOSINE) [Concomitant]
  6. IMMUCYST [Suspect]
     Indication: BLADDER CANCER
     Route: 043
     Dates: start: 20110616, end: 20110616
  7. EZETIMIBE [Concomitant]
  8. NEXIUM [Concomitant]
  9. KETOPROFEN [Concomitant]

REACTIONS (8)
  - HISTIOCYTOSIS HAEMATOPHAGIC [None]
  - PYREXIA [None]
  - COLITIS [None]
  - ASTHENIA [None]
  - BOVINE TUBERCULOSIS [None]
  - PYRAMIDAL TRACT SYNDROME [None]
  - MOBILITY DECREASED [None]
  - ORAL HERPES [None]
